FAERS Safety Report 11071898 (Version 2)
Quarter: 2015Q2

REPORT INFORMATION
  Report Type: Report from Study
  Country: PL (occurrence: PL)
  Receive Date: 20150428
  Receipt Date: 20150610
  Transmission Date: 20150821
  Serious: Yes (Hospitalization)
  Sender: FDA-Public Use
  Company Number: PL-BAYER-2015-142433

PATIENT
  Age: 54 Year
  Sex: Male

DRUGS (7)
  1. FUROSEMIDUM [FUROSEMIDE] [Concomitant]
  2. SPIRONOL [Concomitant]
     Active Substance: SPIRONOLACTONE
  3. METOPROLOL TARTRATE. [Concomitant]
     Active Substance: METOPROLOL TARTRATE
  4. SORAFENIB (RAF KINASE INHIBITOR) [Suspect]
     Active Substance: SORAFENIB
     Indication: HEPATOCELLULAR CARCINOMA
     Dosage: 400 MG, BID
     Route: 048
     Dates: start: 20150108, end: 20150421
  5. TELMISARTAN. [Concomitant]
     Active Substance: TELMISARTAN
  6. TRAMADOLUM [Concomitant]
  7. CLEXANE [Concomitant]
     Active Substance: ENOXAPARIN SODIUM

REACTIONS (4)
  - General physical health deterioration [Recovered/Resolved]
  - Ascites [None]
  - Fatigue [None]
  - Oedema peripheral [Recovered/Resolved]

NARRATIVE: CASE EVENT DATE: 20150407
